FAERS Safety Report 5070016-3 (Version None)
Quarter: 2006Q3

REPORT INFORMATION
  Report Type: 
  Country: None (occurrence: None)
  Receive Date: 20060731
  Receipt Date: 20060725
  Transmission Date: 20061208
  Serious: Yes (Hospitalization)
  Sender: FDA-Public Use
  Company Number: FRP06000775

PATIENT
  Age: 68 Year
  Sex: Female

DRUGS (10)
  1. ACTONEL [Suspect]
     Dosage: ORAL
     Route: 048
     Dates: start: 20010615, end: 20040615
  2. FOSAMAX [Suspect]
     Dosage: 70 MG, 1/WEEK, ORAL
     Route: 048
     Dates: start: 20040615, end: 20060401
  3. PREDNISONE TAB [Suspect]
     Dosage: 8 MG, DAILY, ORAL
     Route: 048
     Dates: start: 20010615
  4. OMEPRAZOLE [Concomitant]
  5. PLAVIX [Concomitant]
  6. ATACAND (CANDERSARTAN CILEXETIL) [Concomitant]
  7. AMLODIPINE BESYLATE [Concomitant]
  8. CACIT D3 (CALCIUM CARBONATE, COLECALCIFEROL) EFFERVESCENT GRANULES [Concomitant]
  9. TOCOPHEROX [Concomitant]
  10. PEPSANE (GUAIAZULENE, DIMETICONE) [Concomitant]

REACTIONS (4)
  - ABSCESS JAW [None]
  - DISEASE RECURRENCE [None]
  - JAW DISORDER [None]
  - OSTEONECROSIS [None]
